FAERS Safety Report 7955661-7 (Version None)
Quarter: 2011Q4

REPORT INFORMATION
  Report Type: 
  Country: None (occurrence: None)
  Receive Date: 20111204
  Receipt Date: 20110822
  Transmission Date: 20120403
  Serious: No
  Sender: FDA-Public Use
  Company Number: US-ALLERGAN-1111240US

PATIENT
  Age: 42 Year
  Sex: Female

DRUGS (1)
  1. ACZONE [Suspect]
     Indication: ACNE
     Dosage: UNK
     Route: 061
     Dates: start: 20110820

REACTIONS (4)
  - SKIN EXFOLIATION [None]
  - SKIN IRRITATION [None]
  - ERYTHEMA [None]
  - BURNING SENSATION [None]
